FAERS Safety Report 17689675 (Version 1)
Quarter: 2020Q2

REPORT INFORMATION
  Report Type: Spontaneous
  Country: US (occurrence: US)
  Receive Date: 20200421
  Receipt Date: 20200421
  Transmission Date: 20200714
  Serious: No
  Sender: FDA-Public Use
  Company Number: US-ASTRAZENECA-2020SE49231

PATIENT
  Sex: Female

DRUGS (1)
  1. FASENRA [Suspect]
     Active Substance: BENRALIZUMAB
     Indication: EOSINOPHILIC PNEUMONIA CHRONIC
     Dosage: EVERY EIGHT WEEKS
     Route: 058

REACTIONS (2)
  - Product dose omission [Unknown]
  - Flushing [Unknown]
